FAERS Safety Report 8805083 (Version 1)
Quarter: 2012Q4

REPORT INFORMATION
  Report Type: 
  Country: US (occurrence: US)
  Receive Date: 20120924
  Receipt Date: 20120924
  Transmission Date: 20130627
  Serious: No
  Sender: FDA-Public Use
  Company Number: US-ALLERGAN-1211991US

PATIENT
  Age: 59 Year
  Sex: Female

DRUGS (3)
  1. LUMIGAN� 0.01% [Suspect]
     Indication: INCREASED INTRAOCULAR PRESSURE
     Dosage: 2 Gtt, UNK
     Route: 047
     Dates: start: 20120818, end: 20120819
  2. LUMIGAN� 0.01% [Suspect]
     Dosage: 1 Gtt, UNK
     Route: 047
     Dates: start: 20120819, end: 20120819
  3. PREDNISONE [Concomitant]
     Indication: SJOGREN^S SYNDROME
     Dosage: 2.5 mg, UNK
     Route: 048
     Dates: start: 2011

REACTIONS (6)
  - Rash [Recovered/Resolved]
  - Scleral hyperaemia [Recovered/Resolved]
  - Eyelid thickening [Recovered/Resolved]
  - Eye swelling [Recovered/Resolved]
  - Rash [Recovered/Resolved]
  - Ocular hyperaemia [Recovered/Resolved]
